FAERS Safety Report 8151536 (Version 2)
Quarter: 2013Q4

REPORT INFORMATION
  Report Type: Spontaneous
  Country: US (occurrence: US)
  Receive Date: 20110922
  Receipt Date: 20131115
  Transmission Date: 20140711
  Serious: Yes (Hospitalization, Other)
  Sender: FDA-Public Use
  Company Number: US-ELI_LILLY_AND_COMPANY-US201109002960

PATIENT
  Age: 75 Year
  Sex: Female

DRUGS (2)
  1. HUMULIN 30% REGULAR, 70% NPH [Suspect]
     Indication: DIABETES MELLITUS
     Dosage: 59 U, PRN
     Route: 065
     Dates: start: 1972
  2. HUMULIN NPH [Suspect]
     Indication: PRODUCT USED FOR UNKNOWN INDICATION
     Route: 065

REACTIONS (6)
  - Myocardial infarction [Unknown]
  - Staphylococcal infection [Unknown]
  - Abscess [Unknown]
  - Post procedural complication [Unknown]
  - Mass [Unknown]
  - Drug dispensing error [Unknown]
